FAERS Safety Report 25824304 (Version 1)
Quarter: 2025Q3

REPORT INFORMATION
  Report Type: Spontaneous
  Country: US (occurrence: None)
  Receive Date: 20250919
  Receipt Date: 20250919
  Transmission Date: 20251020
  Serious: No
  Sender: FDA-CTU
  Company Number: None

PATIENT
  Age: 39 Year
  Sex: Female
  Weight: 56.25 kg

DRUGS (3)
  1. QELBREE [Suspect]
     Active Substance: VILOXAZINE HYDROCHLORIDE
     Indication: Attention deficit hyperactivity disorder
     Route: 048
     Dates: start: 20250713, end: 20250917
  2. MAGNESIUM [Concomitant]
     Active Substance: MAGNESIUM
  3. CREATINE [Concomitant]
     Active Substance: CREATINE

REACTIONS (12)
  - Withdrawal syndrome [None]
  - Negative thoughts [None]
  - Emotional disorder [None]
  - Menstrual disorder [None]
  - Attention deficit hyperactivity disorder [None]
  - Migraine [None]
  - Chills [None]
  - Diarrhoea [None]
  - Inability to afford medication [None]
  - Irritability [None]
  - Confusional state [None]
  - Fatigue [None]

NARRATIVE: CASE EVENT DATE: 20250917
